FAERS Safety Report 7016111-0 (Version None)
Quarter: 2010Q3

REPORT INFORMATION
  Report Type: 
  Country: None (occurrence: None)
  Receive Date: 20100927
  Receipt Date: 20100616
  Transmission Date: 20110219
  Serious: No
  Sender: FDA-Public Use
  Company Number: US-ASTRAZENECA-2010SE28233

PATIENT
  Age: 64 Year
  Sex: Female
  Weight: 81.6 kg

DRUGS (9)
  1. ARIMIDEX [Suspect]
     Indication: BREAST CANCER
     Route: 048
     Dates: start: 20091001, end: 20100501
  2. LIPITOR [Concomitant]
     Indication: HYPERCHOLESTEROLAEMIA
  3. WELLBUTRIN [Concomitant]
  4. CALCIUM [Concomitant]
  5. CLONIDINE [Concomitant]
     Indication: HYPERTENSION
  6. VITAMIN D [Concomitant]
  7. PROZAC [Concomitant]
     Indication: ANXIETY
  8. LOPRESSOR [Concomitant]
     Indication: HYPERTENSION
  9. TAMOXIFEN CITRATE [Concomitant]

REACTIONS (4)
  - BURNING SENSATION [None]
  - CONSTIPATION [None]
  - DRUG DOSE OMISSION [None]
  - OEDEMA PERIPHERAL [None]
